FAERS Safety Report 7984349-1 (Version None)
Quarter: 2011Q4

REPORT INFORMATION
  Report Type: 
  Country: None (occurrence: None)
  Receive Date: 20111216
  Receipt Date: 20111206
  Transmission Date: 20120403
  Serious: Yes (Other)
  Sender: FDA-Public Use
  Company Number: DE-BAYER-2011-104828

PATIENT
  Age: 43 Year
  Sex: Female
  Weight: 76 kg

DRUGS (1)
  1. MIRENA [Suspect]
     Indication: CONTRACEPTION
     Dosage: 20 ?G/D, CONT
     Route: 015
     Dates: start: 20090701

REACTIONS (4)
  - CIRCULATORY COLLAPSE [None]
  - CARDIOVASCULAR DISORDER [None]
  - BLOOD PRESSURE FLUCTUATION [None]
  - DIZZINESS [None]
